FAERS Safety Report 4494542-0 (Version None)
Quarter: 2004Q4

REPORT INFORMATION
  Report Type: 
  Country: None (occurrence: None)
  Receive Date: 20041105
  Receipt Date: 20041026
  Transmission Date: 20050328
  Serious: Yes (Other)
  Sender: FDA-Public Use
  Company Number: SI-MERCK-0410USA04009

PATIENT
  Sex: Male

DRUGS (7)
  1. ASPARAGINASE (AS DRUG) [Suspect]
     Indication: LEUKAEMIA RECURRENT
     Route: 042
  2. CYCLOPHOSPHAMIDE [Suspect]
     Indication: LEUKAEMIA RECURRENT
     Route: 065
  3. VINCRISTINE SULFATE [Suspect]
     Indication: LEUKAEMIA RECURRENT
     Route: 065
  4. DOXORUBICIN [Suspect]
     Indication: LEUKAEMIA RECURRENT
     Route: 065
  5. CYTARABINE [Suspect]
     Indication: LEUKAEMIA RECURRENT
     Route: 065
  6. METHOTREXATE [Suspect]
     Indication: LEUKAEMIA RECURRENT
     Route: 065
  7. MERCAPTOPURINE [Suspect]
     Indication: LEUKAEMIA RECURRENT
     Route: 065

REACTIONS (1)
  - PRIMARY HYPOGONADISM [None]
